FAERS Safety Report 15735058 (Version 1)
Quarter: 2018Q4

REPORT INFORMATION
  Report Type: Spontaneous
  Country: US (occurrence: US)
  Receive Date: 20181218
  Receipt Date: 20181218
  Transmission Date: 20190205
  Serious: Yes (Hospitalization, Disabling)
  Sender: FDA-Public Use
  Company Number: US-JNJFOC-20181214032

PATIENT
  Age: 66 Year
  Sex: Male
  Weight: 90.72 kg

DRUGS (1)
  1. INVOKANA [Suspect]
     Active Substance: CANAGLIFLOZIN
     Indication: TYPE 2 DIABETES MELLITUS
     Route: 048
     Dates: start: 20141120, end: 20170417

REACTIONS (8)
  - Osteomyelitis [Recovering/Resolving]
  - Leg amputation [Unknown]
  - Metabolic encephalopathy [Recovered/Resolved]
  - Diabetic gangrene [Recovering/Resolving]
  - Diabetic foot [Recovering/Resolving]
  - Systemic inflammatory response syndrome [Recovering/Resolving]
  - Diabetic ketoacidosis [Recovered/Resolved]
  - Acute kidney injury [Recovered/Resolved]

NARRATIVE: CASE EVENT DATE: 201703
